FAERS Safety Report 7432122-5 (Version None)
Quarter: 2011Q2

REPORT INFORMATION
  Report Type: 
  Country: None (occurrence: None)
  Receive Date: 20110422
  Receipt Date: 20110405
  Transmission Date: 20111010
  Serious: No
  Sender: FDA-Public Use
  Company Number: US-B.I. PHARMACEUTICALS,INC./RIDGEFIELD-2011-BP-10119BP

PATIENT
  Age: 74 Year
  Sex: Male

DRUGS (13)
  1. NORCO [Concomitant]
     Indication: BACK PAIN
  2. ACETAMINOPHEN [Concomitant]
  3. BETAPACE [Concomitant]
     Indication: ATRIAL FIBRILLATION
  4. FUROSEMIDE [Concomitant]
     Indication: DIURETIC THERAPY
  5. POTASSIUM [Concomitant]
     Indication: MINERAL SUPPLEMENTATION
  6. NIACIN [Concomitant]
     Indication: BLOOD CHOLESTEROL INCREASED
  7. FISH OIL [Concomitant]
     Indication: SUPPLEMENTATION THERAPY
  8. COZAAR [Concomitant]
     Indication: HYPERTENSION
  9. MULTI-VITAMIN [Concomitant]
     Indication: SUPPLEMENTATION THERAPY
  10. ASPIRIN [Concomitant]
  11. PRADAXA [Suspect]
     Indication: ATRIAL FIBRILLATION
     Dosage: 300 MG
     Route: 048
     Dates: start: 20110311
  12. VERAPAMIL [Concomitant]
     Indication: HYPERTENSION
     Dosage: 240 MG
  13. TEMAZEPAM [Concomitant]
     Indication: INSOMNIA

REACTIONS (2)
  - ABDOMINAL PAIN UPPER [None]
  - HEADACHE [None]
